FAERS Safety Report 6029503-3 (Version None)
Quarter: 2009Q1

REPORT INFORMATION
  Report Type: 
  Country: None (occurrence: None)
  Receive Date: 20090106
  Receipt Date: 20081225
  Transmission Date: 20090719
  Serious: Yes (Hospitalization, Other)
  Sender: FDA-Public Use
  Company Number: JP-PFIZER INC-2008153939

PATIENT

DRUGS (2)
  1. CHAMPIX [Suspect]
     Indication: SMOKING CESSATION THERAPY
     Dosage: 1 MG, 2X/DAY
     Route: 048
     Dates: start: 20081101
  2. RABEPRAZOLE SODIUM [Concomitant]
     Route: 048
     Dates: start: 20081118

REACTIONS (2)
  - PANCREATIC ENZYMES ABNORMAL [None]
  - PANCREATITIS ACUTE [None]
